FAERS Safety Report 23503154 (Version 2)
Quarter: 2024Q1

REPORT INFORMATION
  Report Type: Report from Study
  Country: US (occurrence: US)
  Receive Date: 20240208
  Receipt Date: 20240222
  Transmission Date: 20240409
  Serious: No
  Sender: FDA-Public Use
  Company Number: US-AstraZeneca-CH-00558929A

PATIENT
  Sex: Male
  Weight: 24.853 kg

DRUGS (1)
  1. STRENSIQ [Suspect]
     Active Substance: ASFOTASE ALFA
     Indication: Product used for unknown indication
     Dosage: 24.8 MILLIGRAM, SIX TIMES/WEEK
     Route: 058

REACTIONS (4)
  - Vomiting [Recovered/Resolved]
  - Pain [Unknown]
  - Weight increased [Unknown]
  - Fatigue [Unknown]
